FAERS Safety Report 4943491-X (Version None)
Quarter: 2006Q1

REPORT INFORMATION
  Report Type: 
  Country: None (occurrence: None)
  Receive Date: 20060314
  Receipt Date: 20060228
  Transmission Date: 20060701
  Serious: Yes (Death, Other)
  Sender: FDA-Public Use
  Company Number: JP-JNJFOC-20041200617

PATIENT
  Sex: Male

DRUGS (17)
  1. LEUSTATIN [Suspect]
  2. LEUSTATIN [Suspect]
  3. DIPHENHYDRAMINE HYDROCHLORIDE [Concomitant]
  4. DIPHENHYDRAMINE HYDROCHLORIDE [Concomitant]
     Indication: PROPHYLAXIS
  5. ACETAMINOPHEN [Concomitant]
  6. ACETAMINOPHEN [Concomitant]
     Indication: PROPHYLAXIS
  7. MITOXANTRONE HYDROCHLORIDE [Concomitant]
  8. MITOXANTRONE HYDROCHLORIDE [Concomitant]
  9. DEXAMETHASONE SODIUM PHOSPHATE [Concomitant]
  10. DEXAMETHASONE SODIUM PHOSPHATE [Concomitant]
  11. ALLOPURINOL [Concomitant]
     Indication: HYPERURICAEMIA
  12. LAFUTIDINE [Concomitant]
     Indication: GASTRITIS
  13. RITUXIMAB [Concomitant]
  14. CONCENTRATED HUMAN RED BLOOD CELLS [Concomitant]
  15. CONCENTRATED HUMAN RED BLOOD CELLS [Concomitant]
  16. CONCENTRATED HUMAN RED BLOOD CELLS [Concomitant]
  17. NARTOGRASTIM [Concomitant]

REACTIONS (11)
  - ALANINE AMINOTRANSFERASE INCREASED [None]
  - ASPARTATE AMINOTRANSFERASE INCREASED [None]
  - B-CELL LYMPHOMA [None]
  - BLOOD ALBUMIN DECREASED [None]
  - BLOOD CREATININE INCREASED [None]
  - BLOOD UREA INCREASED [None]
  - HAEMOGLOBIN DECREASED [None]
  - NEUTROPHIL COUNT DECREASED [None]
  - PHARYNGEAL HAEMORRHAGE [None]
  - PLATELET COUNT DECREASED [None]
  - PROTEIN TOTAL DECREASED [None]
